FAERS Safety Report 10681922 (Version 1)
Quarter: 2014Q4

REPORT INFORMATION
  Report Type: Spontaneous
  Country: DE (occurrence: None)
  Receive Date: 20141224
  Receipt Date: 20141224
  Transmission Date: 20150529
  Serious: Yes (Life-Threatening, Hospitalization)
  Sender: FDA-Public Use
  Company Number: FK201406404

PATIENT
  Age: 23 Year
  Sex: Male

DRUGS (3)
  1. CEFAZOLIN [Suspect]
     Active Substance: CEFAZOLIN
     Indication: PROPHYLAXIS
     Route: 042
     Dates: start: 20141122, end: 20141123
  2. PROPOFOL. [Concomitant]
     Active Substance: PROPOFOL
  3. SUFENTA [Concomitant]
     Active Substance: SUFENTANIL CITRATE

REACTIONS (2)
  - Pancreatitis acute [None]
  - Pancreatitis necrotising [None]

NARRATIVE: CASE EVENT DATE: 20141123
